FAERS Safety Report 16829661 (Version 1)
Quarter: 2019Q3

REPORT INFORMATION
  Report Type: Spontaneous
  Country: US (occurrence: US)
  Receive Date: 20190919
  Receipt Date: 20190919
  Transmission Date: 20191005
  Serious: Yes (Hospitalization, Other)
  Sender: FDA-Public Use
  Company Number: US-JNJFOC-20190912348

PATIENT
  Age: 19 Year
  Sex: Male

DRUGS (5)
  1. CYCLOPHOSPHAMIDE. [Suspect]
     Active Substance: CYCLOPHOSPHAMIDE
     Indication: PLASMABLASTIC LYMPHOMA
  2. PREDNISONE. [Suspect]
     Active Substance: PREDNISONE
     Indication: PLASMABLASTIC LYMPHOMA
  3. DOXIL [Suspect]
     Active Substance: DOXORUBICIN HYDROCHLORIDE
     Indication: PLASMABLASTIC LYMPHOMA
     Route: 065
  4. ETOPOSIDE. [Suspect]
     Active Substance: ETOPOSIDE
     Indication: PLASMABLASTIC LYMPHOMA
  5. VINCRISTINE [Suspect]
     Active Substance: VINCRISTINE
     Indication: PLASMABLASTIC LYMPHOMA

REACTIONS (8)
  - Off label use [Unknown]
  - Pneumonia [Unknown]
  - Cytopenia [Unknown]
  - Febrile neutropenia [Unknown]
  - Hypotension [Unknown]
  - Clostridium difficile infection [Unknown]
  - Pneumonia klebsiella [Unknown]
  - Product use in unapproved indication [Unknown]
